FAERS Safety Report 22339024 (Version 1)
Quarter: 2023Q2

REPORT INFORMATION
  Report Type: Spontaneous
  Country: US (occurrence: US)
  Receive Date: 20230518
  Receipt Date: 20230518
  Transmission Date: 20230722
  Serious: Yes (Congenital Anomaly, Other)
  Sender: FDA-Public Use
  Company Number: US-TORRENT-00012657

PATIENT
  Sex: Female

DRUGS (3)
  1. OLANZAPINE [Suspect]
     Active Substance: OLANZAPINE
     Indication: Psychotic symptom
     Dosage: UNKNOWN
     Route: 065
  2. HALOPERIDOL [Suspect]
     Active Substance: HALOPERIDOL
     Indication: Psychotic symptom
     Dosage: UNKNOWN
     Route: 065
  3. MIRTAZAPINE [Suspect]
     Active Substance: MIRTAZAPINE
     Indication: Psychotic symptom
     Dosage: UNKNOWN
     Route: 065

REACTIONS (7)
  - Treatment failure [Unknown]
  - Condition aggravated [Unknown]
  - Weight decreased [Unknown]
  - Double outlet right ventricle [Unknown]
  - Transposition of the great vessels [Unknown]
  - Exposure during pregnancy [Unknown]
  - Cerebral ventricle dilatation [Unknown]
